FAERS Safety Report 4645403-5 (Version None)
Quarter: 2005Q2

REPORT INFORMATION
  Report Type: 
  Country: None (occurrence: None)
  Receive Date: 20050425
  Receipt Date: 20050413
  Transmission Date: 20051028
  Serious: Yes (Hospitalization)
  Sender: FDA-Public Use
  Company Number: 2005059211

PATIENT
  Age: 64 Year
  Sex: Female

DRUGS (1)
  1. EPIRUBICIN [Suspect]
     Indication: HEPATIC NEOPLASM MALIGNANT
     Dosage: 30 MG (1 D), INTRAVENOUS
     Route: 042
     Dates: start: 20050315, end: 20050315

REACTIONS (2)
  - ATRIAL FIBRILLATION [None]
  - VENTRICULAR TACHYCARDIA [None]
